FAERS Safety Report 9933112 (Version 1)
Quarter: 2014Q1

REPORT INFORMATION
  Report Type: Spontaneous
  Country: DE (occurrence: DE)
  Receive Date: 20140228
  Receipt Date: 20140228
  Transmission Date: 20141002
  Serious: Yes (Congenital Anomaly, Other)
  Sender: FDA-Public Use
  Company Number: GXKR2014DE001056

PATIENT
  Age: 1 Day
  Sex: Female
  Weight: 3.28 kg

DRUGS (3)
  1. CITALOPRAM [Suspect]
     Indication: DEPRESSION
     Dosage: 40 [MG/D ]/ DOSE; REDUCTION IN PREGNANCY. 20 MG ALREADY IN WEEK 6 OR 7 (0. - 30.2 GESTATIONAL WEEK)
     Route: 064
  2. FOLSAEURE [Concomitant]
     Indication: PROPHYLAXIS OF NEURAL TUBE DEFECT
     Dosage: UNKNOWN DOSE (5. - 5.5. GESTATIONAL WEEK)
     Route: 064
  3. THYMIAN [Concomitant]
     Indication: COUGH
     Dosage: UNKNOWN DOSE (14. - 15. GESTATIONAL WEEK)
     Route: 064

REACTIONS (2)
  - Motor developmental delay [Unknown]
  - Dermoid cyst [Not Recovered/Not Resolved]
